FAERS Safety Report 12162735 (Version 1)
Quarter: 2016Q1

REPORT INFORMATION
  Report Type: Spontaneous
  Country: US (occurrence: None)
  Receive Date: 20160308
  Receipt Date: 20160308
  Transmission Date: 20160526
  Serious: No
  Sender: FDA-Public Use
  Company Number: None

PATIENT
  Age: 70 Year
  Sex: Female
  Weight: 90.72 kg

DRUGS (6)
  1. LOSARTAN POTASSIUM. [Concomitant]
     Active Substance: LOSARTAN POTASSIUM
  2. CITRICAL [Concomitant]
     Active Substance: CALCIUM CITRATE
  3. OMEPRAZOLE. [Concomitant]
     Active Substance: OMEPRAZOLE
  4. VERAPMIL ER [Concomitant]
  5. EQUATE MULTIVITAMIN [Concomitant]
  6. BELSOMRA [Suspect]
     Active Substance: SUVOREXANT
     Indication: INSOMNIA
     Dosage: 1 PILL ONCE DAILY TAKEN BY MOUTH
     Route: 048
     Dates: start: 20160303, end: 20160303

REACTIONS (4)
  - Insomnia [None]
  - Palpitations [None]
  - Paradoxical drug reaction [None]
  - Agitation [None]

NARRATIVE: CASE EVENT DATE: 20160303
